FAERS Safety Report 8804142 (Version 1)
Quarter: 2012Q4

REPORT INFORMATION
  Report Type: 
  Country: US (occurrence: US)
  Receive Date: 20120924
  Receipt Date: 20120924
  Transmission Date: 20130627
  Serious: No
  Sender: FDA-Public Use
  Company Number: US-B.I. PHARMACEUTICALS,INC./RIDGEFIELD-2012-BP-22585BP

PATIENT
  Sex: Female
  Weight: 78 kg

DRUGS (3)
  1. COMBIVENT [Suspect]
  2. INDERAL [Concomitant]
     Indication: MIGRAINE
     Dosage: 120 mg
     Route: 048
     Dates: start: 2002
  3. CELEXA [Concomitant]
     Indication: DEPRESSION
     Dosage: 20 mg
     Route: 048
     Dates: start: 2011

REACTIONS (7)
  - Ocular hyperaemia [Not Recovered/Not Resolved]
  - Eyelid oedema [Not Recovered/Not Resolved]
  - Eye irritation [Not Recovered/Not Resolved]
  - Eye pruritus [Not Recovered/Not Resolved]
  - Nasal congestion [Not Recovered/Not Resolved]
  - Erythema of eyelid [Not Recovered/Not Resolved]
  - Drug administration error [Recovered/Resolved]
